FAERS Safety Report 9170100 (Version 1)
Quarter: 2013Q1

REPORT INFORMATION
  Report Type: Spontaneous
  Country: US (occurrence: None)
  Receive Date: 20130307
  Receipt Date: 20130307
  Transmission Date: 20140127
  Serious: Yes (Other)
  Sender: FDA-Public Use
  Company Number: ADR-2013-00163

PATIENT
  Sex: Male

DRUGS (1)
  1. LIORESAL [Suspect]
     Indication: MUSCLE SPASTICITY
     Dosage: 200 MCG/DAY

REACTIONS (15)
  - Drug withdrawal syndrome [None]
  - Confusional state [None]
  - Hallucination [None]
  - Constipation [None]
  - Diarrhoea [None]
  - Mental status changes [None]
  - Aggression [None]
  - Anger [None]
  - Psychotic disorder [None]
  - Delusion [None]
  - Incontinence [None]
  - Hand deformity [None]
  - Staring [None]
  - Disturbance in social behaviour [None]
  - Expired drug administered [None]
